FAERS Safety Report 4478752-4 (Version None)
Quarter: 2004Q4

REPORT INFORMATION
  Report Type: 
  Country: None (occurrence: None)
  Receive Date: 20041019
  Receipt Date: 20041012
  Transmission Date: 20050328
  Serious: Yes (Other)
  Sender: FDA-Public Use
  Company Number: US-ROCHE-383312

PATIENT
  Age: 25 Year
  Sex: Female

DRUGS (2)
  1. PEGASYS [Suspect]
     Indication: HEPATITIS C
     Dosage: ROUTE: INJECTABLE.
     Route: 050
     Dates: start: 20040115, end: 20040115
  2. COPEGUS [Suspect]
     Indication: HEPATITIS C
     Route: 048
     Dates: start: 20040115, end: 20040115

REACTIONS (2)
  - DYSARTHRIA [None]
  - FACIAL PALSY [None]
